FAERS Safety Report 18165453 (Version 2)
Quarter: 2020Q3

REPORT INFORMATION
  Report Type: Spontaneous
  Country: US (occurrence: US)
  Receive Date: 20200818
  Receipt Date: 20200827
  Transmission Date: 20201103
  Serious: Yes (Life-Threatening, Hospitalization)
  Sender: FDA-Public Use
  Company Number: US-TEVA-2020-US-1815190

PATIENT
  Age: 25 Year
  Sex: Female

DRUGS (18)
  1. DEXTROSE. [Concomitant]
     Active Substance: DEXTROSE
     Indication: BLOOD GLUCOSE ABNORMAL
     Dosage: 10% INFUSION WITH INSULIN
     Route: 041
  2. METHYLENE BLUE. [Suspect]
     Active Substance: METHYLENE BLUE
     Indication: VASOPLEGIA SYNDROME
     Dosage: OVER 30 MIN
     Route: 040
  3. DEXTROSE. [Concomitant]
     Active Substance: DEXTROSE
     Indication: BLOOD GLUCOSE ABNORMAL
     Dosage: GLUCOSE 50% INTRAVENOUS PUSH WITH INSULIN
     Route: 042
  4. NOREPINEPHRINE. [Suspect]
     Active Substance: NOREPINEPHRINE
     Indication: VASOPLEGIA SYNDROME
     Dosage: UP?TITRATED
     Route: 050
  5. PROMETHAZINE [Suspect]
     Active Substance: PROMETHAZINE HYDROCHLORIDE
     Indication: SUICIDE ATTEMPT
     Dosage: TOTAL OF 1.5 G
     Route: 048
  6. CALCIUM GLUCONATE. [Suspect]
     Active Substance: CALCIUM GLUCONATE
     Indication: VASOPLEGIA SYNDROME
     Dosage: 1ML/KG/H
     Route: 041
  7. INSULIN [Suspect]
     Active Substance: INSULIN NOS
     Indication: VASOPLEGIA SYNDROME
     Dosage: IV BOLUS OF INSULIN AT 1UNIT/KG FOLLOWED BY IV INFUSION OF INSULIN AT 0.5 UNITS/KG/H TITRATED UP ...
     Route: 040
  8. CALCIUM GLUCONATE. [Suspect]
     Active Substance: CALCIUM GLUCONATE
     Indication: VASOPLEGIA SYNDROME
     Dosage: 2160 ML DAILY; SHE RECEIVED IV BOLUS OF CALCIUM GLUCONATE AT 30ML OVER 10 MIN FOR THREE TIMES AT AN
     Route: 040
  9. DILTIAZEM. [Suspect]
     Active Substance: DILTIAZEM
     Indication: SUICIDE ATTEMPT
     Dosage: SHE HAD INGESTED NINETY DILTIAZEM 180MG SUSTAINED?RELEASE TABLETS (TOTAL DOSE 16.2G)
     Route: 048
  10. NOREPINEPHRINE. [Suspect]
     Active Substance: NOREPINEPHRINE
     Indication: VASOPLEGIA SYNDROME
     Dosage: 2880 MICROGRAM DAILY;
     Route: 050
  11. GLUCAGON. [Suspect]
     Active Substance: GLUCAGON
     Indication: VASOPLEGIA SYNDROME
     Dosage: IV BOLUS OF GLUCAGON AT 5MG, FOLLOWED BY IV INFUSION OF GLUCAGON AT 5 MG/H
     Route: 040
  12. GLUCAGON. [Suspect]
     Active Substance: GLUCAGON
     Dosage: 120 MILLIGRAM DAILY;
     Route: 041
  13. PHENYLEPHRINE [Suspect]
     Active Substance: PHENYLEPHRINE HYDROCHLORIDE
     Dosage: UP?TITRATED
     Route: 050
  14. TRAZODONE [Suspect]
     Active Substance: TRAZODONE HYDROCHLORIDE
     Indication: SUICIDE ATTEMPT
     Dosage: TOTAL OF 3 G
     Route: 048
  15. INSULIN [Suspect]
     Active Substance: INSULIN NOS
     Dosage: IV INFUSION OF INSULIN AT 0.5 UNITS/KG/H TITRATED UP TO 5 UNITS/KG/H
     Route: 041
  16. VASOPRESSIN. [Suspect]
     Active Substance: VASOPRESSIN
     Indication: VASOPLEGIA SYNDROME
     Dosage: 0.03 UNITS PER MIN
     Route: 050
  17. PHENYLEPHRINE [Suspect]
     Active Substance: PHENYLEPHRINE HYDROCHLORIDE
     Indication: VASOPLEGIA SYNDROME
     Dosage: 28800 MICROGRAM DAILY;
     Route: 050
  18. POTASSIUM CHLORIDE. [Concomitant]
     Active Substance: POTASSIUM CHLORIDE
     Indication: BLOOD POTASSIUM ABNORMAL
     Dosage: ALONG WITH INSULIN
     Route: 041

REACTIONS (9)
  - Lactic acidosis [Recovered/Resolved]
  - Off label use [Unknown]
  - Sinus tachycardia [Recovered/Resolved]
  - Electrocardiogram QT prolonged [Recovered/Resolved]
  - Intentional overdose [Unknown]
  - Multiple organ dysfunction syndrome [Recovered/Resolved]
  - Vasoplegia syndrome [Recovered/Resolved]
  - Encephalopathy [Recovered/Resolved]
  - Drug ineffective [Unknown]
